FAERS Safety Report 21606919 (Version 1)
Quarter: 2022Q4

REPORT INFORMATION
  Report Type: Spontaneous
  Country: DE (occurrence: DE)
  Receive Date: 20221117
  Receipt Date: 20221117
  Transmission Date: 20230113
  Serious: Yes (Hospitalization, Other)
  Sender: FDA-Public Use
  Company Number: DE-drreddys-LIT/GER/22/0157091

PATIENT
  Age: 66 Year
  Sex: Male

DRUGS (4)
  1. VENLAFAXINE [Suspect]
     Active Substance: VENLAFAXINE HYDROCHLORIDE
     Indication: Product used for unknown indication
  2. LEVETIRACETAM [Suspect]
     Active Substance: LEVETIRACETAM
     Indication: Posterior reversible encephalopathy syndrome
  3. METOPROLOL [Suspect]
     Active Substance: METOPROLOL
     Indication: Posterior reversible encephalopathy syndrome
  4. URAPIDIL [Suspect]
     Active Substance: URAPIDIL
     Indication: Posterior reversible encephalopathy syndrome

REACTIONS (4)
  - Serotonin syndrome [Recovering/Resolving]
  - Posterior reversible encephalopathy syndrome [Recovering/Resolving]
  - Product use in unapproved indication [Unknown]
  - Therapeutic product effect incomplete [Unknown]
